FAERS Safety Report 7092100-5 (Version None)
Quarter: 2010Q4

REPORT INFORMATION
  Report Type: 
  Country: None (occurrence: None)
  Receive Date: 20101109
  Receipt Date: 20101029
  Transmission Date: 20110411
  Serious: Yes (Death, Other)
  Sender: FDA-Public Use
  Company Number: US-AMGEN GMBH-QUU441507

PATIENT

DRUGS (2)
  1. NPLATE [Suspect]
     Indication: IDIOPATHIC THROMBOCYTOPENIC PURPURA
     Dosage: 5 A?G/KG, Q3WK
     Dates: start: 20090427, end: 20100330
  2. PROCRIT [Concomitant]
     Dosage: 40000 IU, QWK
     Route: 058
     Dates: start: 20001011, end: 20100401

REACTIONS (2)
  - METASTASES TO CENTRAL NERVOUS SYSTEM [None]
  - PANCREATIC CARCINOMA METASTATIC [None]
